FAERS Safety Report 9603006 (Version 2)
Quarter: 2014Q1

REPORT INFORMATION
  Report Type: Report from Study
  Country: US (occurrence: US)
  Receive Date: 20131007
  Receipt Date: 20140224
  Transmission Date: 20141002
  Serious: Yes (Other)
  Sender: FDA-Public Use
  Company Number: US-ACTELION-A-US2013-89213

PATIENT
  Age: 42 Year
  Sex: Female

DRUGS (3)
  1. TRACLEER [Suspect]
     Indication: CARDIAC SEPTAL DEFECT
     Dosage: UNK
     Route: 048
  2. SILDENAFIL [Concomitant]
  3. COUMADIN [Concomitant]

REACTIONS (7)
  - Aphasia [Unknown]
  - Blindness transient [Unknown]
  - Hypoaesthesia [Unknown]
  - Lethargy [Unknown]
  - Appetite disorder [Unknown]
  - Mental disorder [Unknown]
  - Feeling abnormal [Unknown]
